FAERS Safety Report 9948961 (Version 1)
Quarter: 2014Q1

REPORT INFORMATION
  Report Type: Spontaneous
  Country: BR (occurrence: BR)
  Receive Date: 20140304
  Receipt Date: 20140304
  Transmission Date: 20141002
  Serious: Yes (Hospitalization)
  Sender: FDA-Public Use
  Company Number: BR-AMGEN-BRASP2014015284

PATIENT
  Age: 75 Year
  Sex: Female
  Weight: 80 kg

DRUGS (7)
  1. ENBREL [Suspect]
     Indication: PSORIATIC ARTHROPATHY
     Dosage: 50 MG, ONCE WEEKLY
     Route: 058
     Dates: start: 201207
  2. LOSARTAN POTASSIUM [Concomitant]
     Dosage: UNK UNK, UNK
  3. ATENOLOL [Concomitant]
     Dosage: UNK UNK, UNK
  4. HYDROCHLOROTHIAZIDE [Concomitant]
     Dosage: UNK UNK, UNK
  5. DAFLON                             /00426001/ [Concomitant]
     Dosage: UNK UNK, UNK
  6. METHOTREXATE [Concomitant]
     Dosage: UNK
     Dates: end: 201311
  7. ARAVA [Concomitant]
     Dosage: UNK DF, 1X/DAY

REACTIONS (5)
  - Ligament sprain [Not Recovered/Not Resolved]
  - Pain in extremity [Unknown]
  - Erysipelas [Unknown]
  - Aspartate aminotransferase increased [Unknown]
  - Alanine aminotransferase increased [Unknown]
